FAERS Safety Report 17014287 (Version 2)
Quarter: 2020Q2

REPORT INFORMATION
  Report Type: Spontaneous
  Country: DE (occurrence: DE)
  Receive Date: 20191111
  Receipt Date: 20200617
  Transmission Date: 20200713
  Serious: Yes (Death, Other)
  Sender: FDA-Public Use
  Company Number: DE-TEVA-2019-DE-1135949

PATIENT
  Sex: Female

DRUGS (10)
  1. RITUXIMAB. [Suspect]
     Active Substance: RITUXIMAB
     Indication: DIFFUSE LARGE B-CELL LYMPHOMA
     Dosage: (1ST LINE, R-CHOP, 6+2 CYCLES)
     Route: 065
     Dates: start: 201711, end: 201805
  2. RITUXIMAB. [Suspect]
     Active Substance: RITUXIMAB
     Dosage: UNK UNK, CYCLIC (FURTHER LINES, RADIOTHERAPY, 40GY)
     Route: 065
     Dates: start: 201812, end: 201901
  3. CYCLOPHOSPHAMIDE. [Suspect]
     Active Substance: CYCLOPHOSPHAMIDE
     Indication: DIFFUSE LARGE B-CELL LYMPHOMA
     Dosage: (1ST LINE, R-CHOP, 6+2 CYCLES)
     Route: 065
     Dates: start: 201711, end: 201805
  4. THALIDOMIDE [Suspect]
     Active Substance: THALIDOMIDE
     Indication: DIFFUSE LARGE B-CELL LYMPHOMA
     Dosage: (1ST LINE, R-CHOP, 6+2 CYCLES)
     Route: 065
     Dates: start: 201711, end: 201805
  5. DEXAMETHASONE. [Suspect]
     Active Substance: DEXAMETHASONE
     Indication: DIFFUSE LARGE B-CELL LYMPHOMA
     Dosage: (1ST LINE, R-CHOP , 6+2 CYCLES)
     Route: 065
     Dates: start: 201711, end: 201805
  6. AZATHIOPRINE. [Suspect]
     Active Substance: AZATHIOPRINE
     Indication: DIFFUSE LARGE B-CELL LYMPHOMA
     Dosage: (1ST LINE, R-CHOP, 6+2 CYCLES)
     Route: 065
     Dates: start: 201711, end: 201805
  7. PREDNISONE. [Suspect]
     Active Substance: PREDNISONE
     Indication: DIFFUSE LARGE B-CELL LYMPHOMA
     Dosage: 60 MILLIGRAM DAILY;
     Route: 065
     Dates: start: 20190212
  8. RITUXIMAB. [Suspect]
     Active Substance: RITUXIMAB
     Dosage: CYCLIC (2ND LINE, R-GEMOX, 3 CYCLES)
     Route: 065
     Dates: start: 201808, end: 201811
  9. BENDAMUSTINE HYDROCHLORIDE. [Suspect]
     Active Substance: BENDAMUSTINE HYDROCHLORIDE
     Indication: DIFFUSE LARGE B-CELL LYMPHOMA
     Route: 042
     Dates: start: 20190214
  10. METHOTREXATE. [Suspect]
     Active Substance: METHOTREXATE
     Indication: DIFFUSE LARGE B-CELL LYMPHOMA
     Dosage: (1ST LINE, R-CHOP, 6+2 CYCLES)
     Route: 065
     Dates: start: 201711, end: 201805

REACTIONS (4)
  - Death [Fatal]
  - Aspartate aminotransferase increased [Unknown]
  - Product use in unapproved indication [Unknown]
  - Blood lactate dehydrogenase increased [Unknown]

NARRATIVE: CASE EVENT DATE: 20190214
